FAERS Safety Report 11913507 (Version 6)
Quarter: 2016Q2

REPORT INFORMATION
  Report Type: Report from Study
  Country: BR (occurrence: BR)
  Receive Date: 20160113
  Receipt Date: 20160519
  Transmission Date: 20160815
  Serious: Yes (Other)
  Sender: FDA-Public Use
  Company Number: PHHY2015BR167887

PATIENT
  Age: 61 Year
  Sex: Female
  Weight: 53 kg

DRUGS (6)
  1. PURAN [Concomitant]
     Active Substance: LEVOTHYROXINE SODIUM
     Indication: THYROID DISORDER
     Dosage: 1 DF, QD
     Route: 048
  2. FILGRASTIM [Concomitant]
     Active Substance: FILGRASTIM
     Indication: SICKLE CELL ANAEMIA
     Dosage: 1 DF, QW
     Route: 007
     Dates: start: 201505
  3. HIDANTAL [Concomitant]
     Active Substance: PHENYTOIN SODIUM
     Indication: EPILEPSY
     Dosage: 2 DF, QD
     Route: 048
  4. EXJADE [Suspect]
     Active Substance: DEFERASIROX
     Indication: SICKLE CELL ANAEMIA
     Dosage: 25 MG/KG, QD (3 DF OF 500 MG ONCE DAILY)
     Route: 048
     Dates: start: 20150922
  5. EXJADE [Suspect]
     Active Substance: DEFERASIROX
     Dosage: 10 MG/KG, QD (500 MG DAILY)
     Route: 048
  6. GARDENAL//PHENOBARBITAL [Concomitant]
     Active Substance: PHENOBARBITAL
     Indication: EPILEPSY
     Dosage: 1 DF, QD
     Route: 048

REACTIONS (21)
  - Weight decreased [Unknown]
  - Anuria [Recovered/Resolved]
  - Pain [Recovered/Resolved]
  - Peripheral swelling [Unknown]
  - Dyspnoea [Recovered/Resolved]
  - Diet refusal [Recovered/Resolved]
  - Back pain [Recovered/Resolved]
  - Urinary tract infection [Recovered/Resolved]
  - Abdominal pain [Recovered/Resolved]
  - Malaise [Recovered/Resolved]
  - Anaemia [Unknown]
  - Pneumonia [Recovered/Resolved]
  - Feeding disorder [Recovered/Resolved]
  - Pyrexia [Recovered/Resolved]
  - Blood urea increased [Unknown]
  - Asthenia [Recovered/Resolved]
  - Malaise [Recovered/Resolved]
  - Mouth injury [Recovered/Resolved]
  - Erythema [Recovered/Resolved]
  - Nausea [Recovered/Resolved]
  - Gait disturbance [Recovering/Resolving]

NARRATIVE: CASE EVENT DATE: 201510
